FAERS Safety Report 13876532 (Version 1)
Quarter: 2017Q3

REPORT INFORMATION
  Report Type: Spontaneous
  Country: IT (occurrence: IT)
  Receive Date: 20170817
  Receipt Date: 20170817
  Transmission Date: 20171127
  Serious: Yes (Other)
  Sender: FDA-Public Use
  Company Number: PHHY2017IT119038

PATIENT
  Age: 69 Year
  Sex: Male

DRUGS (3)
  1. HALDOL [Suspect]
     Active Substance: HALOPERIDOL
     Indication: INTENTIONAL SELF-INJURY
     Dosage: 90 MG, TOT
     Route: 048
     Dates: start: 20170723, end: 20170723
  2. DEPAMIDE [Suspect]
     Active Substance: VALPROMIDE
     Indication: INTENTIONAL SELF-INJURY
     Dosage: 90 DF, TOT
     Route: 048
     Dates: start: 20170723, end: 20170723
  3. TEGRETOL [Suspect]
     Active Substance: CARBAMAZEPINE
     Indication: INTENTIONAL SELF-INJURY
     Dosage: 90 DF, TOT
     Route: 048
     Dates: start: 20170723, end: 20170723

REACTIONS (2)
  - Sopor [Recovering/Resolving]
  - Intentional overdose [Recovering/Resolving]

NARRATIVE: CASE EVENT DATE: 20170723
